FAERS Safety Report 21942440 (Version 1)
Quarter: 2023Q1

REPORT INFORMATION
  Report Type: Report from Study
  Country: US (occurrence: US)
  Receive Date: 20230202
  Receipt Date: 20230202
  Transmission Date: 20230417
  Serious: No
  Sender: FDA-Public Use
  Company Number: US-EXELIXIS-CABO-22057647

PATIENT
  Sex: Male

DRUGS (1)
  1. CABOMETYX [Suspect]
     Active Substance: CABOZANTINIB S-MALATE
     Indication: Renal cancer
     Dosage: 40 MG, QD
     Route: 048

REACTIONS (10)
  - Gastrooesophageal reflux disease [Unknown]
  - Back pain [Unknown]
  - Pain [Unknown]
  - Blood potassium decreased [Unknown]
  - Stomatitis [Recovering/Resolving]
  - Fatigue [Recovered/Resolved]
  - Blood pressure increased [Unknown]
  - Diarrhoea [Unknown]
  - Arthralgia [Unknown]
  - Paraesthesia [Unknown]
